FAERS Safety Report 10886553 (Version 1)
Quarter: 2015Q1

REPORT INFORMATION
  Report Type: Other
  Country: IN (occurrence: IN)
  Receive Date: 20150304
  Receipt Date: 20150304
  Transmission Date: 20150721
  Serious: Yes (Hospitalization)
  Sender: FDA-Public Use
  Company Number: IN-ENDO PHARMACEUTICALS INC-RISP20150002

PATIENT
  Age: 50 Year
  Sex: Female

DRUGS (4)
  1. RISPERIDONE TABLETS [Suspect]
     Active Substance: RISPERIDONE
     Indication: SCHIZOAFFECTIVE DISORDER
     Route: 065
  2. ZUCLOPENTHIXOL DEPOT [Concomitant]
     Active Substance: ZUCLOPENTHIXOL
     Indication: SCHIZOAFFECTIVE DISORDER
     Route: 065
  3. TRIHEXYPHENIDYL HYDROCHLORIDE TABLETS 2MG [Concomitant]
     Indication: SCHIZOAFFECTIVE DISORDER
     Route: 065
  4. SODIUM VALPROATE [Suspect]
     Active Substance: VALPROATE SODIUM
     Indication: SCHIZOAFFECTIVE DISORDER
     Route: 065

REACTIONS (1)
  - Hyperammonaemia [Recovered/Resolved]
